FAERS Safety Report 25794883 (Version 1)
Quarter: 2025Q3

REPORT INFORMATION
  Report Type: Spontaneous
  Country: CN (occurrence: CN)
  Receive Date: 20250912
  Receipt Date: 20250912
  Transmission Date: 20251020
  Serious: Yes (Other)
  Sender: OCTAPHARMA
  Company Number: CN-OCTA-2025000828

PATIENT
  Age: 64 Year
  Sex: Male
  Weight: 67 kg

DRUGS (1)
  1. ALBUMIN HUMAN [Suspect]
     Active Substance: ALBUMIN HUMAN
     Indication: Hypoproteinaemia
     Route: 042
     Dates: start: 20250905, end: 20250905

REACTIONS (4)
  - Rash [Recovering/Resolving]
  - Hypoaesthesia [Recovering/Resolving]
  - Chest discomfort [Recovering/Resolving]
  - Pruritus [Recovering/Resolving]

NARRATIVE: CASE EVENT DATE: 20250905
